FAERS Safety Report 9891654 (Version 1)
Quarter: 2014Q1

REPORT INFORMATION
  Report Type: Spontaneous
  Country: IT (occurrence: IT)
  Receive Date: 20140212
  Receipt Date: 20140212
  Transmission Date: 20141002
  Serious: Yes (Death, Other)
  Sender: FDA-Public Use
  Company Number: PHHY2014IT016903

PATIENT
  Sex: Female

DRUGS (9)
  1. CICLOSPORIN [Suspect]
     Indication: PROPHYLAXIS AGAINST GRAFT VERSUS HOST DISEASE
  2. MYCOPHENOLATE MOFETIL [Suspect]
     Indication: PROPHYLAXIS AGAINST GRAFT VERSUS HOST DISEASE
  3. BASILIXIMAB [Suspect]
  4. ANTITHYMOCYTE IMMUNOGLOBULIN [Suspect]
     Indication: PROPHYLAXIS AGAINST GRAFT VERSUS HOST DISEASE
  5. RITUXIMAB [Suspect]
     Indication: THROMBOCYTOPENIA
  6. METHYLPREDNISOLONE [Suspect]
     Indication: THROMBOCYTOPENIA
     Dosage: 1 MG/KG, UNK
  7. BUSULFAN [Concomitant]
  8. THIOTEPA [Concomitant]
  9. FLUDARABINE [Concomitant]

REACTIONS (4)
  - Disease recurrence [Fatal]
  - Candida infection [Unknown]
  - Thrombocytopenia [Unknown]
  - Drug ineffective [Unknown]
